FAERS Safety Report 4280469-6 (Version None)
Quarter: 2004Q1

REPORT INFORMATION
  Report Type: 
  Country: None (occurrence: None)
  Receive Date: 20040127
  Receipt Date: 20040119
  Transmission Date: 20041129
  Serious: Yes (Hospitalization, Other)
  Sender: FDA-Public Use
  Company Number: CA-JNJFOC-20031002438

PATIENT
  Age: 27 Year
  Sex: Female
  Weight: 47.6277 kg

DRUGS (1)
  1. ORTHO TRI-CYCLEN [Suspect]
     Indication: CONTRACEPTION
     Dosage: 1 DOSE (S), 1 IN 1 DAY, ORAL
     Route: 048
     Dates: start: 20030810, end: 20030916

REACTIONS (3)
  - CHROMATURIA [None]
  - JAUNDICE [None]
  - PRURITUS [None]
